FAERS Safety Report 7097941-6 (Version None)
Quarter: 2010Q4

REPORT INFORMATION
  Report Type: 
  Country: None (occurrence: None)
  Receive Date: 20101103
  Receipt Date: 20101019
  Transmission Date: 20110411
  Serious: Yes (Hospitalization)
  Sender: FDA-Public Use
  Company Number: THQ2010A03103

PATIENT
  Age: 11 Year
  Sex: Male

DRUGS (44)
  1. LANSOPRAZOLE [Suspect]
     Indication: PRODUCT USED FOR UNKNOWN INDICATION
     Dosage: 15 MG (7.5 MG, 2 IN 1 D), PER ORAL
     Route: 048
     Dates: start: 20100628, end: 20100728
  2. DIAZEPAM [Suspect]
     Indication: PRODUCT USED FOR UNKNOWN INDICATION
     Dosage: (5 MG, 1 D), PER ORAL; (4 ML, 1 D), PER ORAL
     Route: 048
     Dates: start: 20100622, end: 20100701
  3. DIAZEPAM [Suspect]
     Indication: PRODUCT USED FOR UNKNOWN INDICATION
     Dosage: (5 MG, 1 D), PER ORAL; (4 ML, 1 D), PER ORAL
     Route: 048
     Dates: start: 20100702, end: 20100722
  4. MORPHINE [Suspect]
     Dosage: 2 MG/KG (UID/QD), INTRAVENOUS DRIP
     Route: 041
     Dates: start: 20100621, end: 20100709
  5. FAMOTIDINE [Suspect]
     Dosage: 15 MG (7.5 MG, 2 IN 1 D), PER ORAL; 16 MG (8 MG, 2 IN 1 D), INTRAVENOUS DRIP
     Route: 048
     Dates: start: 20100617, end: 20100626
  6. FAMOTIDINE [Suspect]
     Dosage: 15 MG (7.5 MG, 2 IN 1 D), PER ORAL; 16 MG (8 MG, 2 IN 1 D), INTRAVENOUS DRIP
     Route: 048
     Dates: start: 20100626, end: 20100715
  7. CEFAZOLIN [Suspect]
     Dosage: 1000 MG (500 MG, 2 IN 1 D), INTRAVENOUS DRIP
     Route: 041
     Dates: start: 20100622, end: 20100624
  8. MIDAZOLAM HCL [Suspect]
     Dosage: 10 MG (UID/QD), INTRAVENOUS DRIP
     Route: 041
     Dates: start: 20100617, end: 20100709
  9. PHENOBARBITAL TAB [Suspect]
     Dosage: 100 MG (50 MG, 2 IN 1 D), PER ORAL
     Route: 048
     Dates: start: 20100622, end: 20100709
  10. AMPICILLIN [Suspect]
     Dosage: 1500 MG (375 MG, 4 IN 1 D), INTRAVENOUS DRIP
     Route: 041
     Dates: start: 20100715, end: 20100716
  11. ROCEPHIN [Suspect]
     Indication: INFECTION
     Dosage: 200 MG (UID/QD), INTRAVENOUS DRIP
     Route: 041
     Dates: start: 20100630, end: 20100707
  12. BIOFERMIN R (STREPTOCOCCUS FAECALIS) [Suspect]
     Dosage: 0.3 ML (UID/QD), PER ORAL
     Route: 048
     Dates: start: 20100702, end: 20100714
  13. ACETAMINOPHEN [Suspect]
     Indication: PYREXIA
     Dosage: 300 MG (UID/QD), PER ORAL
     Route: 048
     Dates: start: 20100627, end: 20100716
  14. MIDAZOLAM [Suspect]
     Dosage: 10 MG (UID/QD), INTRAVENOUS DRIP
     Route: 041
     Dates: start: 20100621, end: 20100621
  15. CLINDAMYCIN PHOSPHATE [Suspect]
     Dosage: 300 MG (100 MG, 3 IN 1 D), INTRAVENOUS DRIP
     Route: 041
     Dates: start: 20100708, end: 20100710
  16. PIPERACILLIN SODIUM [Suspect]
     Dosage: 1500 MG (375 MG, 4 IN 1 D), INTRAVENOUS DRIP
     Route: 041
     Dates: start: 20100715, end: 20100716
  17. LACTOBACILLUS ACIDOPHILUS, BACILLUS SUBTILIS, STREPTOCOCCUS PAECALIS [Suspect]
     Dosage: (1 GM, 1 D), PER ORAL
     Route: 048
     Dates: start: 20100711, end: 20100718
  18. LASIX [Suspect]
     Dosage: 10 MG (2.5, 4 IN 1 D), PER ORAL
     Route: 048
     Dates: start: 20100626, end: 20100706
  19. ALDACTONE [Suspect]
     Dosage: 10 MG (2.5, 4 IN 1 D), PER ORAL
     Route: 048
     Dates: start: 20100626, end: 20100706
  20. LACTOBACILLUS CASEI [Suspect]
     Dosage: (500 MG, 1 D), PER ORAL
     Route: 048
     Dates: start: 20100702, end: 20100709
  21. DEPAS (ETIZOLAM) [Suspect]
     Dosage: 1 DF (UID/QD), PER ORAL
     Route: 048
     Dates: start: 20100701, end: 20100701
  22. TRICLORYL (TRICLOFOS SODIUM) [Suspect]
     Dosage: 20 ML (UID/QD), PER ORAL
     Route: 048
     Dates: start: 20100628, end: 20100705
  23. LAXOBERON (SODIUM PICOSULFATE) [Suspect]
     Dosage: 10 ML (UID/QD), PER ORAL
     Route: 048
     Dates: start: 20100620, end: 20100620
  24. OMEPRAZOLE [Suspect]
     Dosage: 15 MG (7.5 MG, 2 IN 1 D), INTRAVENOUS DRIP
     Route: 041
     Dates: start: 20100716, end: 20100721
  25. HEPARIN SODIUM [Suspect]
     Dosage: 5 IU/KG (UID/QD), INTRAVENOUS DRIP
     Route: 041
     Dates: start: 20100808, end: 20100812
  26. HEPARIN SODIUM [Suspect]
     Dosage: 2 DF (UID/QD), INTRAVENOUS DRIP
     Route: 041
     Dates: start: 20100617
  27. GLYCEOL (GLYCEROL, FRUCTOSE) [Suspect]
     Dosage: (200 ML, 1 D), INTRAVENOUS DRIP
     Route: 041
     Dates: start: 20100617, end: 20100618
  28. DECADRON [Suspect]
     Dosage: (2 MG, 1 D), INTRAVENOUS DRIP
     Route: 041
     Dates: start: 20100617, end: 20100622
  29. ATROPINE SULFATE [Suspect]
     Dosage: 0.5 MG (UID/QD), INTRAVENOUS DRIP
     Route: 041
     Dates: start: 20100617, end: 20100622
  30. EPINEPHRINE [Suspect]
     Dosage: 10 MG (UID/QD), INTRAVENOUS DRIP
     Route: 041
     Dates: start: 20100621, end: 20100621
  31. CALCICOL (CALCIUM GLUCONATE) [Suspect]
     Dosage: 10 ML (UID/QD), INTRAVENOUS DRIP
     Route: 041
     Dates: start: 20100621, end: 20100621
  32. FENTANYL-100 [Suspect]
     Dosage: INTRAVENOUS DRIP
     Route: 041
     Dates: start: 20100621, end: 20100708
  33. ULTIVA [Suspect]
     Dosage: INTRAVENOUS DRIP
     Route: 041
     Dates: start: 20100621, end: 20100708
  34. NICARPINE (NICARDIPINE HYDROCHLORIDE) [Suspect]
     Dosage: INTRAVENOUS DRIP
     Route: 041
     Dates: start: 20100622, end: 20100624
  35. PRECEDEX [Suspect]
     Dosage: INTRAVENOUS DRIP
     Route: 041
     Dates: start: 20100704, end: 20100705
  36. ROCURONIUM BROMIDE [Suspect]
     Dosage: 50 MG (UID/QD), INTRAVENOUS DRIP
     Route: 041
     Dates: start: 20100617, end: 20100706
  37. XYLOCAINE [Suspect]
     Dosage: 10 ML (UID/QD), INTRAVENOUS DRIP
     Route: 041
     Dates: start: 20100622, end: 20100705
  38. PANTOL (DEXPANTHENOL) [Suspect]
     Dosage: 50 MG (25 MG, 2 IN 1 D), INTRAVENOUS DRIP
     Route: 041
     Dates: start: 20100604, end: 20100705
  39. ATARAX [Suspect]
     Dosage: 25 MG (UID/QD), INTRAVENOUS DRIP
     Route: 041
     Dates: start: 20100709, end: 20100709
  40. ANHIBA (PARACETAMOL) [Suspect]
     Dosage: RECTAL
     Route: 054
     Dates: start: 20100630, end: 20100716
  41. FLURBIPROFEN [Suspect]
     Dosage: 3.5 ML (UID/QD), INTRAVENOUS DRIP
     Route: 041
     Dates: start: 20100709, end: 20100709
  42. OFLOXACIN [Suspect]
     Dosage: OPHTHALMIC
     Route: 047
     Dates: start: 20100728, end: 20100729
  43. HYALEIN (HYALURONATE SODIUM) [Suspect]
     Dosage: OPHTHALMIC
     Route: 047
     Dates: start: 20100723, end: 20100821
  44. GLYCEROL 2.6% [Suspect]
     Indication: CONSTIPATION
     Dosage: RECTAL
     Route: 054
     Dates: start: 20100621

REACTIONS (1)
  - DRUG RASH WITH EOSINOPHILIA AND SYSTEMIC SYMPTOMS [None]
